FAERS Safety Report 9145445 (Version 2)
Quarter: 2013Q1

REPORT INFORMATION
  Report Type: Spontaneous
  Country: JP (occurrence: JP)
  Receive Date: 20130307
  Receipt Date: 20130314
  Transmission Date: 20140127
  Serious: Yes (Hospitalization)
  Sender: FDA-Public Use
  Company Number: JP-ABBOTT-13A-087-1060013-00

PATIENT
  Age: 70 Year
  Sex: Male

DRUGS (1)
  1. CLARITHROMYCIN [Suspect]
     Indication: COUGH
     Dates: start: 2011

REACTIONS (1)
  - Vanishing bile duct syndrome [Recovering/Resolving]
